FAERS Safety Report 6084417-8 (Version None)
Quarter: 2009Q1

REPORT INFORMATION
  Report Type: 
  Country: None (occurrence: None)
  Receive Date: 20090219
  Receipt Date: 20090212
  Transmission Date: 20090719
  Serious: Yes (Life-Threatening)
  Sender: FDA-Public Use
  Company Number: B0535788D

PATIENT
  Age: 5 Year
  Sex: Female
  Weight: 15 kg

DRUGS (7)
  1. COMBIVIR [Suspect]
     Indication: HIV INFECTION
     Dosage: .5TAB TWICE PER DAY
     Route: 048
     Dates: start: 20080423
  2. ABACAVIR [Suspect]
     Indication: HIV INFECTION
     Dosage: .5TAB TWICE PER DAY
     Route: 048
     Dates: start: 20080423
  3. NEVIRAPINE [Suspect]
     Indication: HIV INFECTION
     Dosage: 300MG PER DAY
     Route: 048
     Dates: start: 20080423
  4. CO-TRIMOXAZOLE [Concomitant]
     Dates: start: 20080326
  5. MULTI-VITAMINS [Concomitant]
  6. FERROUS SULPHATE [Concomitant]
  7. FOLIC ACID [Concomitant]

REACTIONS (4)
  - ANAEMIA [None]
  - ASTHENIA [None]
  - COUGH [None]
  - PALLOR [None]
